FAERS Safety Report 8184735-3 (Version None)
Quarter: 2012Q1

REPORT INFORMATION
  Report Type: 
  Country: None (occurrence: None)
  Receive Date: 20120305
  Receipt Date: 20120305
  Transmission Date: 20120608
  Serious: Yes (Hospitalization)
  Sender: FDA-Public Use
  Company Number: None

PATIENT
  Age: 84 Year
  Sex: Male

DRUGS (2)
  1. WARFARIN SODIUM [Suspect]
     Indication: ATRIAL FIBRILLATION
     Dosage: 7MG
     Route: 048
     Dates: start: 20111219, end: 20111224
  2. ENOXAPARIN [Concomitant]
     Indication: ATRIAL FIBRILLATION
     Dosage: 90MG
     Route: 058
     Dates: start: 20111219, end: 20111224

REACTIONS (6)
  - RENAL IMPAIRMENT [None]
  - CONTUSION [None]
  - INTERNATIONAL NORMALISED RATIO INCREASED [None]
  - INTERNATIONAL NORMALISED RATIO DECREASED [None]
  - HAEMORRHAGE [None]
  - HAEMATEMESIS [None]
